FAERS Safety Report 19800849 (Version 1)
Quarter: 2021Q3

REPORT INFORMATION
  Report Type: Spontaneous
  Country: MX (occurrence: MX)
  Receive Date: 20210907
  Receipt Date: 20210907
  Transmission Date: 20211014
  Serious: Yes (Hospitalization, Other)
  Sender: FDA-Public Use
  Company Number: MX-BRACCO-2021MX03882

PATIENT
  Age: 71 Year
  Sex: Female

DRUGS (1)
  1. PROHANCE [Suspect]
     Active Substance: GADOTERIDOL
     Indication: CHOLANGIOGRAM
     Dosage: UNK
     Route: 042
     Dates: start: 20201117, end: 20201117

REACTIONS (5)
  - Hypertensive crisis [Unknown]
  - Hyperhidrosis [Unknown]
  - Headache [Unknown]
  - Nausea [Unknown]
  - Vertigo [Unknown]

NARRATIVE: CASE EVENT DATE: 20201117
